FAERS Safety Report 8553237-4 (Version None)
Quarter: 2012Q3

REPORT INFORMATION
  Report Type: 
  Country: None (occurrence: None)
  Receive Date: 20120731
  Receipt Date: 20120723
  Transmission Date: 20120928
  Serious: Yes (Death)
  Sender: FDA-Public Use
  Company Number: US-BAYER-2012-073668

PATIENT

DRUGS (2)
  1. MIRENA [Suspect]
     Dosage: 20 MCG/24HR, CONT
     Route: 064
     Dates: start: 20110708, end: 20111116
  2. DEPO-PROVERA [Suspect]
     Dosage: UNK
     Route: 064
     Dates: start: 20110630, end: 20110630

REACTIONS (1)
  - PREMATURE BABY [None]
